FAERS Safety Report 12594667 (Version 2)
Quarter: 2016Q3

REPORT INFORMATION
  Report Type: Report from Study
  Country: US (occurrence: US)
  Receive Date: 20160726
  Receipt Date: 20160811
  Transmission Date: 20161109
  Serious: Yes (Hospitalization)
  Sender: FDA-Public Use
  Company Number: US-ACTELION-A-US2015-116749

PATIENT
  Age: 77 Year
  Sex: Female

DRUGS (3)
  1. ADCIRCA [Concomitant]
     Active Substance: TADALAFIL
  2. VELETRI [Suspect]
     Active Substance: EPOPROSTENOL
     Indication: PULMONARY ARTERIAL HYPERTENSION
     Dosage: 23 NG/KG, PER MIN
     Route: 042
     Dates: start: 20090408
  3. VELETRI [Suspect]
     Active Substance: EPOPROSTENOL
     Dosage: 27 NG/KG, PER MIN
     Route: 042

REACTIONS (6)
  - Cystitis [Unknown]
  - Hypotension [Recovered/Resolved]
  - Pneumonia [Recovered/Resolved]
  - Influenza [Unknown]
  - Renal failure [Recovered/Resolved]
  - Sinusitis [Unknown]

NARRATIVE: CASE EVENT DATE: 20150408
